FAERS Safety Report 18886899 (Version 1)
Quarter: 2021Q1

REPORT INFORMATION
  Report Type: Spontaneous
  Country: US (occurrence: US)
  Receive Date: 20210212
  Receipt Date: 20210212
  Transmission Date: 20210420
  Serious: No
  Sender: FDA-Public Use
  Company Number: US-TAKEDA-2021TUS006061

PATIENT
  Sex: Male
  Weight: 124.94 kg

DRUGS (23)
  1. DIPHENHYDRAMINE. [Concomitant]
     Active Substance: DIPHENHYDRAMINE
  2. PREDNISONE. [Concomitant]
     Active Substance: PREDNISONE
  3. VENTOLIN [Concomitant]
     Active Substance: ALBUTEROL SULFATE
  4. IBUPROFEN. [Concomitant]
     Active Substance: IBUPROFEN
  5. GABAPENTIN. [Concomitant]
     Active Substance: GABAPENTIN
  6. MELATONIN [Concomitant]
     Active Substance: MELATONIN
  7. OMEGA?3 FISH OIL [Concomitant]
     Active Substance: FISH OIL\OMEGA-3 FATTY ACIDS
  8. SODIUM CHLORIDE. [Concomitant]
     Active Substance: SODIUM CHLORIDE
  9. FORMOTEROL [Concomitant]
     Active Substance: FORMOTEROL
  10. ATROVENT [Concomitant]
     Active Substance: IPRATROPIUM BROMIDE
  11. GAMMAGARD LIQUID [Suspect]
     Active Substance: HUMAN IMMUNOGLOBULIN G
     Indication: MYASTHENIA GRAVIS
     Dosage: 1000 MG/KG, DEVIDE 2D, Q3WEEKS
     Route: 042
     Dates: start: 20210106
  12. OXYMETAZOLINE [Concomitant]
     Active Substance: OXYMETAZOLINE
  13. MESTINON [Concomitant]
     Active Substance: PYRIDOSTIGMINE BROMIDE
  14. ALLEGRA [Concomitant]
     Active Substance: FEXOFENADINE HYDROCHLORIDE
  15. PRADAXA [Concomitant]
     Active Substance: DABIGATRAN ETEXILATE MESYLATE
  16. BUDESONIDE. [Concomitant]
     Active Substance: BUDESONIDE
  17. FUMARATE DISODIUM [Concomitant]
     Active Substance: DISODIUM FUMARATE
  18. OMEPRAZOLE. [Concomitant]
     Active Substance: OMEPRAZOLE
  19. HEPARIN [Concomitant]
     Active Substance: HEPARIN SODIUM
  20. VITAMIN D3 [Concomitant]
     Active Substance: CHOLECALCIFEROL
  21. FLONASE [Concomitant]
     Active Substance: FLUTICASONE PROPIONATE
  22. EPINEPHRINE. [Concomitant]
     Active Substance: EPINEPHRINE
  23. B12 ACTIVE [Concomitant]

REACTIONS (6)
  - Hypertension [Unknown]
  - Vision blurred [Unknown]
  - Dyspnoea [Unknown]
  - Off label use [Unknown]
  - Infusion related reaction [Unknown]
  - Headache [Recovered/Resolved]
